FAERS Safety Report 4287585-3 (Version None)
Quarter: 2004Q1

REPORT INFORMATION
  Report Type: 
  Country: None (occurrence: None)
  Receive Date: 20040209
  Receipt Date: 20030730
  Transmission Date: 20041129
  Serious: No
  Sender: FDA-Public Use
  Company Number: US-GLAXOSMITHKLINE-A0418849A

PATIENT
  Sex: Female

DRUGS (5)
  1. PAXIL CR [Suspect]
     Indication: GASTROINTESTINAL DISORDER
     Dosage: 12.5MG PER DAY
     Route: 048
     Dates: start: 20020101
  2. ASACOL [Concomitant]
  3. YASMIN [Concomitant]
  4. MULTIVITAMIN [Concomitant]
  5. GREEN TEA EXTRACT [Concomitant]

REACTIONS (1)
  - DYSGEUSIA [None]
